FAERS Safety Report 8969419 (Version 1)
Quarter: 2012Q4

REPORT INFORMATION
  Report Type: 
  Country: IT (occurrence: IT)
  Receive Date: 20121218
  Receipt Date: 20121218
  Transmission Date: 20130627
  Serious: Yes (Hospitalization)
  Sender: FDA-Public Use
  Company Number: IT-BAYER-2012-132307

PATIENT
  Age: 67 Year
  Sex: Male

DRUGS (1)
  1. ASPIRINA [Suspect]
     Indication: FLU
     Dosage: Daily dose 1000 mg
     Route: 048
     Dates: start: 20121204, end: 20121209

REACTIONS (2)
  - Melaena [Unknown]
  - Syncope [Unknown]
